FAERS Safety Report 5207937-4 (Version None)
Quarter: 2007Q1

REPORT INFORMATION
  Report Type: 
  Country: None (occurrence: None)
  Receive Date: 20070115
  Receipt Date: 20070111
  Transmission Date: 20070707
  Serious: Yes (Hospitalization)
  Sender: FDA-Public Use
  Company Number: US-ELI_LILLY_AND_COMPANY-US200609003721

PATIENT
  Age: 42 Year
  Sex: Female
  Weight: 74.829 kg

DRUGS (1)
  1. ZYPREXA [Suspect]
     Dosage: UNK, 3/D
     Dates: start: 19971101, end: 19981201

REACTIONS (2)
  - PANCREATIC OPERATION [None]
  - PANCREATITIS [None]
